FAERS Safety Report 7672669-X (Version None)
Quarter: 2011Q3

REPORT INFORMATION
  Report Type: 
  Country: None (occurrence: None)
  Receive Date: 20110809
  Receipt Date: 20110802
  Transmission Date: 20111222
  Serious: Yes (Hospitalization)
  Sender: FDA-Public Use
  Company Number: BR-ABBOTT-11P-020-0839964-00

PATIENT
  Sex: Male
  Weight: 70 kg

DRUGS (6)
  1. HUMIRA [Suspect]
     Route: 058
     Dates: start: 20110501
  2. METHOTREXATE [Concomitant]
     Indication: ANKYLOSING SPONDYLITIS
     Dosage: WEEKLY, 3 TAB IN AM, 2 TABS IN PM
     Route: 048
     Dates: start: 20070101
  3. INDOMETHACIN [Concomitant]
     Indication: PAIN
     Route: 048
     Dates: start: 20100101
  4. HUMIRA [Suspect]
     Indication: ANKYLOSING SPONDYLITIS
     Route: 058
     Dates: start: 20080305, end: 20101001
  5. FOLIC ACID [Concomitant]
     Indication: PRODUCT USED FOR UNKNOWN INDICATION
     Route: 048
     Dates: start: 20070101
  6. PREDNISOLONE [Concomitant]
     Indication: PAIN
     Route: 048

REACTIONS (12)
  - INFLUENZA [None]
  - OROPHARYNGEAL PAIN [None]
  - PYREXIA [None]
  - BONE PAIN [None]
  - RHINITIS [None]
  - RHINORRHOEA [None]
  - GASTROENTERITIS [None]
  - MUSCULOSKELETAL PAIN [None]
  - ORAL HERPES [None]
  - NASOPHARYNGITIS [None]
  - IMMUNODEFICIENCY [None]
  - NECK PAIN [None]
